FAERS Safety Report 21251711 (Version 1)
Quarter: 2022Q3

REPORT INFORMATION
  Report Type: Other
  Country: None (occurrence: US)
  Receive Date: 20220825
  Receipt Date: 20220825
  Transmission Date: 20221027
  Serious: Yes (Hospitalization, Other)
  Sender: FDA-Public Use
  Company Number: US-P+L Developments of Newyork Corporation-2132200

PATIENT
  Age: 55 Year
  Sex: Male

DRUGS (4)
  1. IBUPROFEN [Suspect]
     Active Substance: IBUPROFEN
     Indication: COVID-19
     Route: 065
  2. IVERMECTIN [Suspect]
     Active Substance: IVERMECTIN
     Route: 065
  3. HYDROGEN PEROXIDE [Suspect]
     Active Substance: HYDROGEN PEROXIDE
     Route: 065
  4. CASIRIVIMAB\IMDEVIMAB [Suspect]
     Active Substance: CASIRIVIMAB\IMDEVIMAB
     Route: 065

REACTIONS (4)
  - Intentional product misuse [Unknown]
  - Gastritis erosive [Unknown]
  - Gastrointestinal haemorrhage [Unknown]
  - Shock haemorrhagic [Unknown]
